FAERS Safety Report 23785950 (Version 1)
Quarter: 2024Q2

REPORT INFORMATION
  Report Type: Report from Study
  Country: FR (occurrence: FR)
  Receive Date: 20240426
  Receipt Date: 20240426
  Transmission Date: 20240716
  Serious: Yes (Death, Hospitalization)
  Sender: FDA-Public Use
  Company Number: FR-002147023-NVSC2024FR085371

PATIENT
  Age: 85 Year
  Sex: Male
  Weight: 95 kg

DRUGS (6)
  1. SCEMBLIX [Suspect]
     Active Substance: ASCIMINIB HYDROCHLORIDE
     Indication: Chronic myeloid leukaemia
     Dosage: 40 MG, QD (DAILY)
     Route: 048
     Dates: start: 20230511, end: 20230707
  2. SCEMBLIX [Suspect]
     Active Substance: ASCIMINIB HYDROCHLORIDE
     Dosage: 20 MG
     Route: 048
     Dates: start: 20230811, end: 20231119
  3. AMLODIPINE BESYLATE\PERINDOPRIL TOSYLATE [Concomitant]
     Active Substance: AMLODIPINE BESYLATE\PERINDOPRIL TOSYLATE
     Indication: Hypertension
     Dosage: 8MG/ 5MG
     Route: 048
  4. ATENOLOL [Concomitant]
     Active Substance: ATENOLOL
     Indication: Hypertension
     Dosage: 50 MG
     Route: 048
  5. KARDEGIC [Concomitant]
     Active Substance: ASPIRIN DL-LYSINE
     Indication: Cardiovascular disorder
     Dosage: 75 MG
     Route: 048
  6. PRAVASTATIN [Concomitant]
     Active Substance: PRAVASTATIN
     Indication: Dyslipidaemia
     Dosage: 40 MG
     Route: 048

REACTIONS (1)
  - Shock [Fatal]

NARRATIVE: CASE EVENT DATE: 20230811
